FAERS Safety Report 7443410-0 (Version None)
Quarter: 2011Q2

REPORT INFORMATION
  Report Type: 
  Country: None (occurrence: None)
  Receive Date: 20110428
  Receipt Date: 20110423
  Transmission Date: 20111010
  Serious: Yes (Other)
  Sender: FDA-Public Use
  Company Number: IT-PFIZER INC-2011084105

PATIENT
  Age: 55 Year
  Sex: Male

DRUGS (3)
  1. DELTACORTENE [Concomitant]
     Dosage: 25 MG, 1X/DAY
     Route: 048
  2. DRONAL [Concomitant]
     Dosage: 70 MG, UNK
     Route: 048
     Dates: start: 20070101, end: 20100701
  3. SUTENT [Suspect]
     Indication: RENAL CANCER METASTATIC
     Dosage: 50 MG, 1X/DAY
     Route: 048
     Dates: start: 20110301, end: 20110331

REACTIONS (1)
  - OSTEONECROSIS OF JAW [None]
